FAERS Safety Report 16011517 (Version 2)
Quarter: 2019Q3

REPORT INFORMATION
  Report Type: Spontaneous
  Country: US (occurrence: US)
  Receive Date: 20190227
  Receipt Date: 20190702
  Transmission Date: 20191004
  Serious: No
  Sender: FDA-Public Use
  Company Number: US-PFIZER INC-2019077700

PATIENT
  Age: 62 Year
  Sex: Female
  Weight: 78.93 kg

DRUGS (2)
  1. LYRICA [Suspect]
     Active Substance: PREGABALIN
     Dosage: 1 DF, 3X/DAY (1 CAPSULE THREE TIMES DAILY)
     Route: 048
     Dates: start: 20190613
  2. LYRICA [Suspect]
     Active Substance: PREGABALIN
     Indication: FIBROMYALGIA
     Dosage: 150 MG, 3X/DAY, [1 (ONE) CAPSULE BY MOUTH THREE TIMES DAILY]
     Route: 048

REACTIONS (5)
  - Pruritus [Recovered/Resolved]
  - Off label use [Unknown]
  - Balance disorder [Unknown]
  - Malaise [Not Recovered/Not Resolved]
  - Dizziness [Not Recovered/Not Resolved]

NARRATIVE: CASE EVENT DATE: 20190205
